FAERS Safety Report 4278230-1 (Version None)
Quarter: 2004Q1

REPORT INFORMATION
  Report Type: 
  Country: None (occurrence: None)
  Receive Date: 20040122
  Receipt Date: 20040122
  Transmission Date: 20041129
  Serious: Yes (Hospitalization)
  Sender: FDA-Public Use
  Company Number: None

PATIENT
  Age: 64 Year
  Sex: Male
  Weight: 85 kg

DRUGS (1)
  1. CYCLOPHOSPHAMIDE [Suspect]
     Indication: NON-HODGKIN'S LYMPHOMA
     Dosage: 1450 MG IVP Q MONTH
     Route: 042
     Dates: start: 20030327, end: 20031001

REACTIONS (4)
  - ASTHENIA [None]
  - FEBRILE NEUTROPENIA [None]
  - MALAISE [None]
  - PYREXIA [None]
